FAERS Safety Report 4773430-6 (Version None)
Quarter: 2005Q3

REPORT INFORMATION
  Report Type: 
  Country: None (occurrence: None)
  Receive Date: 20050914
  Receipt Date: 20041021
  Transmission Date: 20060218
  Serious: Yes (Other)
  Sender: FDA-Public Use
  Company Number: 163-20785-04100684

PATIENT
  Sex: Female

DRUGS (6)
  1. THALOMID [Suspect]
     Indication: MULTIPLE MYELOMA
     Dosage: 200 MG, DAILY, ORAL; 100 MG, DAILY, ORAL
     Route: 048
     Dates: start: 20030809
  2. DEXAMETHASONE [Suspect]
     Indication: MULTIPLE MYELOMA
  3. CISPLATIN [Suspect]
     Indication: MULTIPLE MYELOMA
  4. ADRIAMYCIN PFS [Suspect]
     Indication: MULTIPLE MYELOMA
  5. CYCLOPHOSPHAMIDE [Suspect]
     Indication: MULTIPLE MYELOMA
  6. ETOPOSIDE [Suspect]
     Indication: MULTIPLE MYELOMA

REACTIONS (1)
  - NEUTROPHIL COUNT DECREASED [None]
